FAERS Safety Report 22838079 (Version 2)
Quarter: 2023Q4

REPORT INFORMATION
  Report Type: Spontaneous
  Country: DE (occurrence: DE)
  Receive Date: 20230818
  Receipt Date: 20231010
  Transmission Date: 20240109
  Serious: Yes (Other)
  Sender: FDA-Public Use
  Company Number: DE-SEPTODONT-2023017930

PATIENT
  Age: 49 Year
  Sex: Female

DRUGS (1)
  1. ARTICAINE HYDROCHLORIDE\EPINEPHRINE BITARTRATE [Suspect]
     Active Substance: ARTICAINE HYDROCHLORIDE\EPINEPHRINE BITARTRATE
     Indication: Dental care
     Dosage: 2.5 ML
     Dates: start: 20230810

REACTIONS (10)
  - Cardiovascular disorder [Recovering/Resolving]
  - Hypotonia [Not Recovered/Not Resolved]
  - Hypotension [Recovering/Resolving]
  - Hypertension [Recovering/Resolving]
  - Tremor [Not Recovered/Not Resolved]
  - Hyperhidrosis [Recovering/Resolving]
  - Heart rate increased [Recovering/Resolving]
  - Hyperventilation [Recovering/Resolving]
  - Fatigue [Not Recovered/Not Resolved]
  - Electric shock sensation [Unknown]

NARRATIVE: CASE EVENT DATE: 20230810
